FAERS Safety Report 6064043-7 (Version None)
Quarter: 2009Q1

REPORT INFORMATION
  Report Type: 
  Country: None (occurrence: None)
  Receive Date: 20090203
  Receipt Date: 20090203
  Transmission Date: 20090719
  Serious: No
  Sender: FDA-Public Use
  Company Number: None

PATIENT
  Sex: Female
  Weight: 90.64 kg

DRUGS (5)
  1. INDOMETHACIN SUSTAINED RELEASE [Suspect]
     Dosage: 75MG CAPSULE SA 75 MG QD ORAL
     Route: 048
     Dates: start: 20081107, end: 20090123
  2. CITALOPRAM HYDROBROMIDE [Concomitant]
  3. COLACE (DOCUSATE SODIUM) [Concomitant]
  4. PERCOCET [Concomitant]
  5. TRAMADOL HCL [Concomitant]

REACTIONS (1)
  - GASTROINTESTINAL DISORDER [None]
